FAERS Safety Report 24354098 (Version 1)
Quarter: 2024Q3

REPORT INFORMATION
  Report Type: Spontaneous
  Country: RU (occurrence: RU)
  Receive Date: 20240923
  Receipt Date: 20240923
  Transmission Date: 20241017
  Serious: Yes (Other)
  Sender: AMERICAN REGENT
  Company Number: RU-AMERICAN REGENT INC-2024003604

PATIENT
  Age: 29 Year
  Sex: Female
  Weight: 74 kg

DRUGS (2)
  1. FERINJECT [Suspect]
     Active Substance: FERRIC CARBOXYMALTOSE
     Indication: Anaemia
     Dosage: SCHEDULED DOSAGE OF 1000 MG IN 250 ML IN 0.9% NACL FOR A PERIOD OF 30 MINUTES (1 IN 1 TOTAL)
     Dates: start: 20240912, end: 20240912
  2. FERROUS SULFATE [Concomitant]
     Active Substance: FERROUS SULFATE
     Indication: Iron deficiency anaemia
     Dosage: 240 MILLIGRAM, QD
     Route: 048
     Dates: start: 20240601, end: 20240901

REACTIONS (4)
  - Depressed level of consciousness [Recovered/Resolved]
  - Maternal exposure during pregnancy [Unknown]
  - Hypotension [Recovered/Resolved]
  - Dizziness [Recovered/Resolved]

NARRATIVE: CASE EVENT DATE: 20240912
